FAERS Safety Report 7760140-6 (Version None)
Quarter: 2011Q3

REPORT INFORMATION
  Report Type: 
  Country: None (occurrence: None)
  Receive Date: 20110919
  Receipt Date: 20110913
  Transmission Date: 20111222
  Serious: Yes (Death, Life-Threatening, Hospitalization, Other)
  Sender: FDA-Public Use
  Company Number: CH-PFIZER INC-2005044544

PATIENT
  Age: 81 Year
  Sex: Male
  Weight: 70 kg

DRUGS (11)
  1. METHOTREXATE SODIUM [Concomitant]
     Route: 065
  2. INSULIN [Concomitant]
     Dosage: UNK
     Route: 065
     Dates: end: 20020717
  3. TORSEMIDE [Concomitant]
     Route: 065
  4. NIZORAL [Concomitant]
     Dosage: UNK
     Dates: start: 20020712, end: 20020717
  5. ZYVOX [Suspect]
     Indication: STAPHYLOCOCCAL INFECTION
     Route: 048
     Dates: start: 20020623, end: 20020716
  6. PREDNISONE [Concomitant]
     Dosage: UNK
     Route: 065
     Dates: end: 20020717
  7. OXAZEPAM [Concomitant]
     Dosage: UNK
     Route: 065
     Dates: end: 20020717
  8. ACETAMINOPHEN [Concomitant]
     Dosage: UNK
     Dates: start: 20020615, end: 20020626
  9. DIGOXIN [Concomitant]
     Route: 048
     Dates: end: 20020715
  10. NITRODERM [Concomitant]
     Route: 062
  11. CITALOPRAM HYDROBROMIDE [Interacting]
     Indication: DEPRESSION
     Dosage: 20 MG, 2X/DAY
     Route: 048
     Dates: start: 20020501, end: 20020715

REACTIONS (7)
  - SEROTONIN SYNDROME [None]
  - LACTIC ACIDOSIS [None]
  - THROMBOCYTOPENIA [None]
  - ANAEMIA [None]
  - RENAL FAILURE [None]
  - DRUG INTERACTION [None]
  - CARDIAC ARREST [None]
